FAERS Safety Report 9953690 (Version 1)
Quarter: 2014Q1

REPORT INFORMATION
  Report Type: Spontaneous
  Country: US (occurrence: US)
  Receive Date: 20140304
  Receipt Date: 20140304
  Transmission Date: 20141002
  Serious: No
  Sender: FDA-Public Use
  Company Number: US-AMGEN-USASP2013070819

PATIENT
  Age: 34 Year
  Sex: Female

DRUGS (7)
  1. ENBREL [Suspect]
     Indication: RHEUMATOID ARTHRITIS
     Dosage: UNK
     Route: 065
  2. ENBREL [Suspect]
  3. TYLENOL                            /00020001/ [Concomitant]
     Dosage: 650 MG, UNK
  4. PREDNISONE [Concomitant]
     Dosage: 1 MG, UNK
  5. NORA-BE [Concomitant]
     Dosage: 0.35 MG, UNK
  6. PLAQUENIL                          /00072602/ [Concomitant]
     Dosage: 200 MG, UNK
  7. IBUPROFEN [Concomitant]
     Dosage: 200 MG, UNK

REACTIONS (1)
  - Injection site extravasation [Unknown]
